FAERS Safety Report 7766340-3 (Version None)
Quarter: 2011Q3

REPORT INFORMATION
  Report Type: 
  Country: None (occurrence: None)
  Receive Date: 20110922
  Receipt Date: 20110915
  Transmission Date: 20111222
  Serious: No
  Sender: FDA-Public Use
  Company Number: US-BIOGENIDEC-2011BI018527

PATIENT
  Sex: Female

DRUGS (1)
  1. TYSABRI [Suspect]
     Indication: MULTIPLE SCLEROSIS
     Route: 042
     Dates: start: 20101112, end: 20110322

REACTIONS (6)
  - DYSPNOEA [None]
  - RASH GENERALISED [None]
  - CARDIAC DISORDER [None]
  - DRUG INEFFECTIVE [None]
  - ADVERSE REACTION [None]
  - PRURITUS GENERALISED [None]
